FAERS Safety Report 8517063-4 (Version None)
Quarter: 2012Q3

REPORT INFORMATION
  Report Type: 
  Country: None (occurrence: None)
  Receive Date: 20120718
  Receipt Date: 20120712
  Transmission Date: 20120928
  Serious: Yes (Hospitalization)
  Sender: FDA-Public Use
  Company Number: US-BAYER-2012-070615

PATIENT
  Age: 29 Year
  Sex: Female
  Weight: 68 kg

DRUGS (6)
  1. YASMIN [Suspect]
     Indication: CONTRACEPTION
  2. ENOXAPARIN [Concomitant]
  3. YASMIN [Suspect]
  4. PROTONIX [Concomitant]
  5. LOVAZA [Concomitant]
  6. DROSPIRENONE AND ETHINYL ESTRADIOL [Suspect]

REACTIONS (2)
  - PULMONARY EMBOLISM [None]
  - DEEP VEIN THROMBOSIS [None]
